FAERS Safety Report 16646314 (Version 1)
Quarter: 2019Q3

REPORT INFORMATION
  Report Type: Spontaneous
  Country: US (occurrence: US)
  Receive Date: 20190730
  Receipt Date: 20190730
  Transmission Date: 20191004
  Serious: Yes (Death, Hospitalization)
  Sender: FDA-Public Use
  Company Number: US-JNJFOC-20190730380

PATIENT

DRUGS (1)
  1. PARACETAMOL [Suspect]
     Active Substance: ACETAMINOPHEN
     Indication: PRODUCT USED FOR UNKNOWN INDICATION
     Route: 048

REACTIONS (6)
  - Drug-induced liver injury [Unknown]
  - Acute hepatic failure [Fatal]
  - Renal tubular necrosis [Unknown]
  - Overdose [Fatal]
  - Hepatic encephalopathy [Unknown]
  - Product administration error [Unknown]
